FAERS Safety Report 25170960 (Version 1)
Quarter: 2025Q2

REPORT INFORMATION
  Report Type: Spontaneous
  Country: CR (occurrence: CR)
  Receive Date: 20250408
  Receipt Date: 20250408
  Transmission Date: 20250717
  Serious: Yes (Other)
  Sender: COLLEGIUM PHARMACEUTICAL
  Company Number: CR-GRUNENTHAL-2025-104610

PATIENT
  Age: 80 Year
  Sex: Female

DRUGS (1)
  1. NUCYNTA [Suspect]
     Active Substance: TAPENTADOL HYDROCHLORIDE
     Indication: Product used for unknown indication
     Route: 065
     Dates: start: 20250130

REACTIONS (2)
  - Hypertension [Unknown]
  - Headache [Unknown]
